FAERS Safety Report 6287871-1 (Version None)
Quarter: 2009Q3

REPORT INFORMATION
  Report Type: 
  Country: None (occurrence: None)
  Receive Date: 20090729
  Receipt Date: 20090722
  Transmission Date: 20100115
  Serious: Yes (Other)
  Sender: FDA-Public Use
  Company Number: US-ELI_LILLY_AND_COMPANY-US200907005233

PATIENT
  Age: 80 Year
  Sex: Female

DRUGS (1)
  1. HUMULIN 70/30 [Suspect]

REACTIONS (5)
  - DEAFNESS UNILATERAL [None]
  - EAR INFECTION VIRAL [None]
  - HYPOACUSIS [None]
  - PRODUCT PACKAGING QUANTITY ISSUE [None]
  - VISUAL ACUITY REDUCED [None]
